FAERS Safety Report 8802879 (Version 2)
Quarter: 2019Q1

REPORT INFORMATION
  Report Type: Spontaneous
  Country: FR (occurrence: FR)
  Receive Date: 20120924
  Receipt Date: 20190329
  Transmission Date: 20190418
  Serious: Yes (Hospitalization)
  Sender: FDA-Public Use
  Company Number: FR-SANOFI-AVENTIS-2012SA066680

PATIENT
  Age: 76 Year
  Sex: Male

DRUGS (11)
  1. DOMPERIDONE [Concomitant]
     Active Substance: DOMPERIDONE
     Dosage: UNK
     Route: 048
  2. SPECIAFOLDINE [Concomitant]
     Active Substance: FOLIC ACID
     Dosage: 5 MG, QD
  3. URBANYL [Concomitant]
     Active Substance: CLOBAZAM
     Dosage: 10 MG,BID
  4. PREVISCAN [PENTOXIFYLLINE] [Concomitant]
     Dosage: 25 MG,QD
     Route: 048
  5. VIMPAT [Concomitant]
     Active Substance: LACOSAMIDE
     Dosage: 200 MG, QD
     Route: 048
     Dates: start: 2012
  6. LOVENOX [Suspect]
     Active Substance: ENOXAPARIN SODIUM
     Indication: PRODUCT USED FOR UNKNOWN INDICATION
     Dosage: UNK UNK,UNK
     Route: 030
     Dates: start: 20120802, end: 20120823
  7. KEPPRA [Concomitant]
     Active Substance: LEVETIRACETAM
     Dosage: 500 MG,BID
     Route: 048
     Dates: start: 20120723
  8. CARBAMAZEPINE. [Suspect]
     Active Substance: CARBAMAZEPINE
     Dosage: 100 MG,BID
     Route: 048
     Dates: start: 20120723, end: 20120823
  9. ZONISAMIDE. [Suspect]
     Active Substance: ZONISAMIDE
     Indication: PRODUCT USED FOR UNKNOWN INDICATION
     Dosage: 50 MG,BID
     Route: 048
     Dates: start: 20120813
  10. INEXIUM [ESOMEPRAZOLE MAGNESIUM] [Concomitant]
     Active Substance: ESOMEPRAZOLE MAGNESIUM
     Dosage: 40 MG, QD
     Route: 048
  11. CARBAMAZEPINE. [Suspect]
     Active Substance: CARBAMAZEPINE
     Dosage: UNK UNK, UNK
     Route: 048
     Dates: end: 20120722

REACTIONS (1)
  - Neutropenia [Recovered/Resolved]

NARRATIVE: CASE EVENT DATE: 20120823
